FAERS Safety Report 8248325-6 (Version None)
Quarter: 2012Q1

REPORT INFORMATION
  Report Type: 
  Country: None (occurrence: None)
  Receive Date: 20120330
  Receipt Date: 20120315
  Transmission Date: 20120608
  Serious: Yes (Hospitalization)
  Sender: FDA-Public Use
  Company Number: TR-WATSON-2012-03576

PATIENT
  Age: 56 Year
  Sex: Female

DRUGS (6)
  1. PAROXETINE HYDROCHLORIDE [Suspect]
     Indication: DEPRESSION
     Dosage: UNK
     Route: 065
  2. DULOXETIME HYDROCHLORIDE [Suspect]
     Indication: DEPRESSION
     Dosage: 60 MG, DAILY
  3. QUETIAPINE [Suspect]
     Indication: INSOMNIA
     Dosage: 300 MG, DAILY
     Route: 065
  4. SERTRALINE HYDROCHLORIDE [Suspect]
     Indication: DEPRESSION
     Dosage: UNK
     Route: 065
  5. FLUOXETINE HCL [Suspect]
     Indication: DEPRESSION
     Dosage: UNK
     Route: 065
  6. QUETIAPINE [Suspect]
     Indication: DEPRESSION
     Dosage: 600 MG, DAILY

REACTIONS (2)
  - RABBIT SYNDROME [None]
  - DRUG INEFFECTIVE [None]
